FAERS Safety Report 6263255-7 (Version None)
Quarter: 2009Q3

REPORT INFORMATION
  Report Type: 
  Country: None (occurrence: None)
  Receive Date: 20090708
  Receipt Date: 20090708
  Transmission Date: 20100115
  Serious: Yes (Other)
  Sender: FDA-Public Use
  Company Number: None

PATIENT
  Sex: Female

DRUGS (2)
  1. DEPAKOTE ER [Suspect]
     Indication: IMPULSE-CONTROL DISORDER
     Dosage: 2 PO 8AM
     Route: 048
     Dates: start: 20090201
  2. DEPAKOTE ER [Suspect]
     Indication: MODERATE MENTAL RETARDATION
     Dosage: 2 PO 8AM
     Route: 048
     Dates: start: 20090201

REACTIONS (3)
  - ABNORMAL BEHAVIOUR [None]
  - BLOOD TEST ABNORMAL [None]
  - PRODUCT SUBSTITUTION ISSUE [None]
